FAERS Safety Report 9351339 (Version 1)
Quarter: 2013Q2

REPORT INFORMATION
  Report Type: Spontaneous
  Country: US (occurrence: US)
  Receive Date: 20130617
  Receipt Date: 20130617
  Transmission Date: 20140414
  Serious: Yes (Other)
  Sender: FDA-Public Use
  Company Number: US-PFIZER INC-2013180986

PATIENT
  Age: 21 Year
  Sex: Female
  Weight: 63.49 kg

DRUGS (3)
  1. ZOLOFT [Suspect]
     Indication: DEPRESSION
     Dosage: 50 MG, DAILY
     Dates: start: 201306
  2. PYRIDIUM [Concomitant]
     Indication: URINARY TRACT INFECTION
     Dosage: UNK
  3. BACTRIM [Concomitant]
     Indication: URINARY TRACT INFECTION
     Dosage: UNK

REACTIONS (2)
  - Drug dependence [Unknown]
  - Drug screen false positive [Unknown]
